FAERS Safety Report 8396136-3 (Version None)
Quarter: 2012Q2

REPORT INFORMATION
  Report Type: 
  Country: None (occurrence: None)
  Receive Date: 20120530
  Receipt Date: 20120524
  Transmission Date: 20120825
  Serious: Yes (Death, Hospitalization)
  Sender: FDA-Public Use
  Company Number: US-GLAXOSMITHKLINE-A0936207A

PATIENT
  Age: 38 Year
  Sex: Male
  Weight: 72.7 kg

DRUGS (6)
  1. AVANDIA [Suspect]
     Indication: DIABETES MELLITUS
     Route: 048
     Dates: start: 20040828, end: 20040901
  2. LOVENOX [Concomitant]
  3. ALTACE [Concomitant]
  4. TRICOR [Concomitant]
  5. PRIMAXIN [Concomitant]
  6. GLUCOPHAGE [Concomitant]

REACTIONS (3)
  - CARDIO-RESPIRATORY ARREST [None]
  - PULMONARY OEDEMA [None]
  - RESPIRATORY FAILURE [None]
